FAERS Safety Report 20320882 (Version 1)
Quarter: 2022Q1

REPORT INFORMATION
  Report Type: Spontaneous
  Country: US (occurrence: US)
  Receive Date: 20220111
  Receipt Date: 20220111
  Transmission Date: 20220423
  Serious: Yes (Hospitalization, Other)
  Sender: FDA-Public Use
  Company Number: US-BEH-2022140320

PATIENT
  Age: 50 Year
  Sex: Female

DRUGS (2)
  1. HAEGARDA [Suspect]
     Active Substance: HUMAN C1-ESTERASE INHIBITOR
     Indication: Hereditary angioedema
     Dosage: 5000 INTERNATIONAL UNIT, BIW
     Route: 058
     Dates: start: 201809
  2. HAEGARDA [Suspect]
     Active Substance: HUMAN C1-ESTERASE INHIBITOR
     Indication: Prophylaxis

REACTIONS (4)
  - Thermal burn [Unknown]
  - Hereditary angioedema [Recovered/Resolved]
  - Injection site induration [Unknown]
  - Injection site pain [Unknown]

NARRATIVE: CASE EVENT DATE: 20211222
